FAERS Safety Report 16343832 (Version 1)
Quarter: 2019Q2

REPORT INFORMATION
  Report Type: Spontaneous
  Country: US (occurrence: US)
  Receive Date: 20190522
  Receipt Date: 20190522
  Transmission Date: 20190711
  Serious: Yes (Death, Other)
  Sender: FDA-Public Use
  Company Number: US-PFIZER INC-2019217198

PATIENT
  Age: 71 Year
  Sex: Female

DRUGS (3)
  1. BUPIVACAINE HCL [Suspect]
     Active Substance: BUPIVACAINE HYDROCHLORIDE
     Indication: PAIN
     Dosage: 10 ML, UNK
     Dates: start: 20190423
  2. DEPO-MEDROL [Suspect]
     Active Substance: METHYLPREDNISOLONE ACETATE
     Indication: PAIN MANAGEMENT
     Dosage: 1 ML, UNK (80 MG / ML PER 1 ML SINGLE DOSE VIAL )
     Dates: start: 20190423
  3. KENALOG [Suspect]
     Active Substance: TRIAMCINOLONE ACETONIDE
     Indication: PAIN MANAGEMENT
     Dosage: 1 ML, UNK
     Dates: start: 20190423

REACTIONS (3)
  - Necrotising soft tissue infection [Unknown]
  - Cardiac arrest [Fatal]
  - Septic shock [Unknown]

NARRATIVE: CASE EVENT DATE: 201904
